FAERS Safety Report 6274135-5 (Version None)
Quarter: 2009Q3

REPORT INFORMATION
  Report Type: 
  Country: None (occurrence: None)
  Receive Date: 20090720
  Receipt Date: 20090715
  Transmission Date: 20100115
  Serious: Yes (Death, Congenital Anomaly)
  Sender: FDA-Public Use
  Company Number: PHHY2009US29301

PATIENT
  Sex: Female

DRUGS (2)
  1. METOPROLOL TARTRATE [Suspect]
     Route: 064
  2. MYCOPHENOLATE MOFETIL [Suspect]
     Indication: LUPUS NEPHRITIS
     Dosage: 250 MG, BID
     Route: 064

REACTIONS (24)
  - CLEFT PALATE [None]
  - COARCTATION OF THE AORTA [None]
  - CONGENITAL DIAPHRAGMATIC HERNIA [None]
  - CONGENITAL EYE DISORDER [None]
  - CONGENITAL HAND MALFORMATION [None]
  - CONGENITAL NAIL DISORDER [None]
  - CYANOSIS [None]
  - DISLOCATION OF VERTEBRA [None]
  - DRUG EXPOSURE DURING PREGNANCY [None]
  - DRY SKIN [None]
  - DYSMORPHISM [None]
  - EAR MALFORMATION [None]
  - EXTERNAL AUDITORY CANAL ATRESIA [None]
  - HEART DISEASE CONGENITAL [None]
  - MATERNAL DRUGS AFFECTING FOETUS [None]
  - MICROTIA [None]
  - NECK DEFORMITY [None]
  - OESOPHAGEAL ATRESIA [None]
  - PREMATURE BABY [None]
  - PULMONARY HYPOPLASIA [None]
  - SYNDACTYLY [None]
  - TRACHEO-OESOPHAGEAL FISTULA [None]
  - UMBILICAL CORD ABNORMALITY [None]
  - VENTRICULAR SEPTAL DEFECT [None]
